FAERS Safety Report 20874515 (Version 2)
Quarter: 2022Q2

REPORT INFORMATION
  Report Type: Report from Study
  Country: CH (occurrence: CH)
  Receive Date: 20220525
  Receipt Date: 20220603
  Transmission Date: 20220721
  Serious: Yes (Death, Hospitalization, Other)
  Sender: FDA-Public Use
  Company Number: CH-GILEAD-2022-0582354

PATIENT
  Age: 72 Year
  Sex: Female

DRUGS (2)
  1. REMDESIVIR [Suspect]
     Active Substance: REMDESIVIR
     Indication: COVID-19
     Route: 065
  2. RITUXIMAB [Concomitant]
     Active Substance: RITUXIMAB
     Indication: Angiopathy
     Dosage: UNK
     Dates: start: 20101124, end: 20200916

REACTIONS (4)
  - Acute respiratory failure [Fatal]
  - COVID-19 [Fatal]
  - Disease recurrence [Fatal]
  - Drug ineffective [Fatal]
